FAERS Safety Report 7349597-2 (Version None)
Quarter: 2011Q1

REPORT INFORMATION
  Report Type: 
  Country: None (occurrence: None)
  Receive Date: 20110309
  Receipt Date: 20110309
  Transmission Date: 20110831
  Serious: Yes (Life-Threatening, Hospitalization)
  Sender: FDA-Public Use
  Company Number: None

PATIENT
  Age: 68 Year
  Sex: Female
  Weight: 69 kg

DRUGS (1)
  1. CARIMUNE [Suspect]
     Indication: MYASTHENIA GRAVIS
     Dosage: 24 GRAM DAILY IV DRIP
     Route: 041
     Dates: start: 20101029, end: 20101102

REACTIONS (6)
  - RENAL FAILURE ACUTE [None]
  - UNRESPONSIVE TO STIMULI [None]
  - METABOLIC ACIDOSIS [None]
  - HAEMODIALYSIS [None]
  - FLUID OVERLOAD [None]
  - DEPRESSED LEVEL OF CONSCIOUSNESS [None]
